FAERS Safety Report 14907185 (Version 1)
Quarter: 2018Q2

REPORT INFORMATION
  Report Type: Spontaneous
  Country: US (occurrence: US)
  Receive Date: 20180517
  Receipt Date: 20180517
  Transmission Date: 20180711
  Serious: No
  Sender: FDA-Public Use
  Company Number: US-TEVA-2018-US-891423

PATIENT
  Age: 42 Year
  Sex: Female
  Weight: 59 kg

DRUGS (8)
  1. FENTORA [Suspect]
     Active Substance: FENTANYL CITRATE
     Indication: SCLERODERMA
     Dates: start: 2006
  2. FENTANYL TRANSDERMAL SYSTEM [Concomitant]
     Active Substance: FENTANYL
     Indication: SCLERODERMA
  3. FENTORA [Suspect]
     Active Substance: FENTANYL CITRATE
     Indication: PULMONARY FIBROSIS
     Dates: start: 2006
  4. FENTANYL TRANSDERMAL SYSTEM [Concomitant]
     Active Substance: FENTANYL
     Indication: RAYNAUD^S PHENOMENON
  5. FENTANYL TRANSDERMAL SYSTEM [Concomitant]
     Active Substance: FENTANYL
     Indication: PULMONARY FIBROSIS
  6. FENTORA [Suspect]
     Active Substance: FENTANYL CITRATE
     Indication: PULMONARY HYPERTENSION
     Dates: start: 2006
  7. FENTORA [Suspect]
     Active Substance: FENTANYL CITRATE
     Indication: RAYNAUD^S PHENOMENON
     Dates: start: 2006
  8. FENTANYL TRANSDERMAL SYSTEM [Concomitant]
     Active Substance: FENTANYL
     Indication: PULMONARY HYPERTENSION

REACTIONS (2)
  - Drug prescribing error [Unknown]
  - Feeling abnormal [Not Recovered/Not Resolved]

NARRATIVE: CASE EVENT DATE: 200601
